FAERS Safety Report 10239090 (Version 1)
Quarter: 2014Q2

REPORT INFORMATION
  Report Type: Spontaneous
  Country: US (occurrence: None)
  Receive Date: 20140613
  Receipt Date: 20140613
  Transmission Date: 20141212
  Serious: No
  Sender: FDA-Public Use
  Company Number: None

PATIENT
  Age: 22 Year
  Sex: Female
  Weight: 51.26 kg

DRUGS (1)
  1. AMOXICILLIN [Suspect]
     Indication: SINUSITIS
     Route: 048
     Dates: start: 20140525, end: 20140601

REACTIONS (7)
  - Flatulence [None]
  - Abdominal distension [None]
  - Fatigue [None]
  - Muscular weakness [None]
  - Menstrual disorder [None]
  - Menstruation delayed [None]
  - Weight increased [None]
